FAERS Safety Report 18604103 (Version 1)
Quarter: 2020Q4

REPORT INFORMATION
  Report Type: Spontaneous
  Country: US (occurrence: US)
  Receive Date: 20201211
  Receipt Date: 20201211
  Transmission Date: 20210114
  Serious: Yes (Other)
  Sender: FDA-Public Use
  Company Number: None

PATIENT
  Age: 4 Month
  Sex: Male
  Weight: 7.45 kg

DRUGS (2)
  1. ZOLGENSMA [Suspect]
     Active Substance: ONASEMNOGENE ABEPARVOVEC-XIOI
     Indication: SPINAL MUSCULAR ATROPHY
     Dosage: ?          OTHER FREQUENCY:1 TIME ONLY;?
     Route: 042
     Dates: start: 20201111, end: 20201111
  2. ZOLGENSMA [Concomitant]
     Active Substance: ONASEMNOGENE ABEPARVOVEC-XIOI
     Dates: start: 20201111, end: 20201111

REACTIONS (2)
  - Troponin increased [None]
  - Hepatic enzyme increased [None]

NARRATIVE: CASE EVENT DATE: 20201207
